FAERS Safety Report 11735141 (Version 1)
Quarter: 2015Q4

REPORT INFORMATION
  Report Type: Spontaneous
  Country: US (occurrence: None)
  Receive Date: 20151112
  Receipt Date: 20151112
  Transmission Date: 20160304
  Serious: Yes (Life-Threatening, Hospitalization, Disabling)
  Sender: FDA-Public Use
  Company Number: None

PATIENT
  Age: 36 Year
  Sex: Male
  Weight: 77.11 kg

DRUGS (5)
  1. ABILIFY [Suspect]
     Active Substance: ARIPIPRAZOLE
     Dosage: PILLS ARE DEADLY?CRIPPLED ME
     Route: 048
  2. INVEGA [Suspect]
     Active Substance: PALIPERIDONE
     Indication: PRODUCT USED FOR UNKNOWN INDICATION
     Dates: start: 2006
  3. VITAMIN C [Concomitant]
     Active Substance: ASCORBIC ACID
  4. VITA FUSION [Concomitant]
  5. MULTI VIT [Concomitant]

REACTIONS (4)
  - Skin burning sensation [None]
  - Condition aggravated [None]
  - Psoriatic arthropathy [None]
  - Pain of skin [None]
